FAERS Safety Report 4861924-4 (Version None)
Quarter: 2005Q4

REPORT INFORMATION
  Report Type: 
  Country: None (occurrence: None)
  Receive Date: 20051129
  Receipt Date: 20050817
  Transmission Date: 20060501
  Serious: Yes (Other)
  Sender: FDA-Public Use
  Company Number: WAES 0409USA02093

PATIENT
  Age: 50 Year
  Sex: Female

DRUGS (5)
  1. ZETIA [Suspect]
     Dosage: PO
     Route: 048
     Dates: end: 20040803
  2. COREG [Concomitant]
  3. PRILOSEC [Concomitant]
  4. SYNTHROID [Concomitant]
  5. VASOTEC [Concomitant]

REACTIONS (3)
  - ALANINE AMINOTRANSFERASE INCREASED [None]
  - ASPARTATE AMINOTRANSFERASE INCREASED [None]
  - BLOOD ALKALINE PHOSPHATASE INCREASED [None]
